FAERS Safety Report 7284010-5 (Version None)
Quarter: 2011Q1

REPORT INFORMATION
  Report Type: 
  Country: None (occurrence: None)
  Receive Date: 20110131
  Receipt Date: 20110114
  Transmission Date: 20110831
  Serious: Yes (Hospitalization, Other)
  Sender: FDA-Public Use
  Company Number: 2011000208

PATIENT
  Age: 82 Year
  Sex: Male

DRUGS (2)
  1. TARCEVA [Suspect]
     Indication: LUNG NEOPLASM MALIGNANT
     Dosage: (150 MG,DAILY),ORAL, (100 MG,DAILY),ORAL; DOSE WAS ON HOLD THEN RESTARTED AT LOWER DOSE
     Route: 048
  2. COUMADIN [Concomitant]

REACTIONS (5)
  - HAEMOPTYSIS [None]
  - VASCULAR RUPTURE [None]
  - NEOPLASM MALIGNANT [None]
  - EYE IRRITATION [None]
  - GASTROINTESTINAL ULCER [None]
